FAERS Safety Report 5242261-5 (Version None)
Quarter: 2007Q1

REPORT INFORMATION
  Report Type: 
  Country: None (occurrence: None)
  Receive Date: 20070216
  Receipt Date: 20070216
  Transmission Date: 20070707
  Serious: Yes (Other)
  Sender: FDA-Public Use
  Company Number: None

PATIENT
  Age: 58 Year
  Sex: Male
  Weight: 90.7194 kg

DRUGS (2)
  1. ZOCOR [Suspect]
     Indication: BLOOD CHOLESTEROL INCREASED
     Dosage: 20 MG  DAILY  PO
     Route: 048
     Dates: start: 20020116, end: 20070116
  2. ZOCOR [Suspect]
     Indication: TRANSIENT ISCHAEMIC ATTACK
     Dosage: 40 MG  DAILY  PO
     Route: 048
     Dates: start: 20070116, end: 20070208

REACTIONS (11)
  - AMNESIA [None]
  - ANGER [None]
  - BALANCE DISORDER [None]
  - DYSARTHRIA [None]
  - FLAT AFFECT [None]
  - INDIFFERENCE [None]
  - REFUSAL OF TREATMENT BY PATIENT [None]
  - REPETITIVE SPEECH [None]
  - SOMNOLENCE [None]
  - STARING [None]
  - TRANSIENT ISCHAEMIC ATTACK [None]
